FAERS Safety Report 18862465 (Version 1)
Quarter: 2021Q1

REPORT INFORMATION
  Report Type: Spontaneous
  Country: US (occurrence: US)
  Receive Date: 20210208
  Receipt Date: 20210208
  Transmission Date: 20210420
  Serious: Yes (Hospitalization)
  Sender: FDA-Public Use
  Company Number: US-AZURITY PHARMACEUTICALS, INC.-2021AZY00016

PATIENT
  Sex: Female

DRUGS (1)
  1. KATERZIA [Suspect]
     Active Substance: AMLODIPINE BENZOATE
     Dosage: 1 MG;  120 QUANTITY, 30 DAY SUPPLY

REACTIONS (1)
  - Hospitalisation [Unknown]
